FAERS Safety Report 5267206-3 (Version None)
Quarter: 2007Q1

REPORT INFORMATION
  Report Type: 
  Country: None (occurrence: None)
  Receive Date: 20070316
  Receipt Date: 20070315
  Transmission Date: 20070707
  Serious: Yes (Other)
  Sender: FDA-Public Use
  Company Number: US-GLAXOSMITHKLINE-A0641830A

PATIENT
  Age: 60 Year
  Sex: Male

DRUGS (2)
  1. CITRUCEL [Suspect]
     Indication: CHANGE OF BOWEL HABIT
     Dosage: 2CAPL PER DAY
     Route: 048
     Dates: start: 20070301, end: 20070304
  2. LEVOTHYROXINE SODIUM [Concomitant]

REACTIONS (3)
  - ARTHRALGIA [None]
  - GOUT [None]
  - PAIN IN EXTREMITY [None]
